FAERS Safety Report 16028739 (Version 2)
Quarter: 2019Q1

REPORT INFORMATION
  Report Type: Spontaneous
  Country: US (occurrence: US)
  Receive Date: 20190304
  Receipt Date: 20190320
  Transmission Date: 20190418
  Serious: Yes (Death)
  Sender: FDA-Public Use
  Company Number: US-VIFOR (INTERNATIONAL) INC.-VIT-2019-01829

PATIENT
  Age: 47 Year
  Sex: Male
  Weight: 87 kg

DRUGS (4)
  1. VELPHORO [Suspect]
     Active Substance: FERRIC OXYHYDROXIDE
     Indication: PRODUCT USED FOR UNKNOWN INDICATION
     Route: 048
     Dates: start: 20180302, end: 20190223
  2. INSULIN [Concomitant]
     Active Substance: INSULIN NOS
  3. CARVEDILOL. [Concomitant]
     Active Substance: CARVEDILOL
  4. SENSIPAR [Concomitant]
     Active Substance: CINACALCET HYDROCHLORIDE

REACTIONS (1)
  - Death [Fatal]

NARRATIVE: CASE EVENT DATE: 20190225
